FAERS Safety Report 17259015 (Version 2)
Quarter: 2020Q1

REPORT INFORMATION
  Report Type: Spontaneous
  Country: FR (occurrence: FR)
  Receive Date: 20200110
  Receipt Date: 20200115
  Transmission Date: 20200409
  Serious: Yes (Hospitalization)
  Sender: FDA-Public Use
  Company Number: FR-MYLANLABS-2020M1002657

PATIENT
  Age: 31 Year
  Sex: Male
  Weight: 83 kg

DRUGS (4)
  1. PREDNISONE. [Suspect]
     Active Substance: PREDNISONE
     Indication: AUTOIMMUNE HAEMOLYTIC ANAEMIA
     Dosage: 160 MILLIGRAM, QD
     Route: 048
     Dates: start: 20190909, end: 20190927
  2. CORTANCYL [Suspect]
     Active Substance: PREDNISONE
     Indication: AUTOIMMUNE HAEMOLYTIC ANAEMIA
     Dosage: 160 MILLIGRAM, QD
     Route: 048
     Dates: start: 20190907
  3. PREDNISOLONE MYLAN 20 MG, COMPRIM? ORODISPERSIBLE [Suspect]
     Active Substance: PREDNISOLONE
     Indication: AUTOIMMUNE HAEMOLYTIC ANAEMIA
     Dosage: 160 MILLIGRAM, QD
     Route: 048
     Dates: start: 20190907, end: 20190927
  4. PREDNISOLONE MYLAN 20 MG, COMPRIM? EFFERVESCENT S?CABLE [Suspect]
     Active Substance: PREDNISOLONE
     Indication: AUTOIMMUNE HAEMOLYTIC ANAEMIA
     Dosage: 160 MILLIGRAM, QD
     Route: 048
     Dates: start: 20190907, end: 20190927

REACTIONS (2)
  - Product supply issue [Not Recovered/Not Resolved]
  - Autoimmune haemolytic anaemia [Not Recovered/Not Resolved]

NARRATIVE: CASE EVENT DATE: 20190927
